FAERS Safety Report 15035770 (Version 2)
Quarter: 2019Q1

REPORT INFORMATION
  Report Type: Spontaneous
  Country: US (occurrence: US)
  Receive Date: 20180620
  Receipt Date: 20190220
  Transmission Date: 20190417
  Serious: Yes (Other)
  Sender: FDA-Public Use
  Company Number: US-ASTRAZENECA-2018SE76940

PATIENT
  Age: 69 Year
  Sex: Male
  Weight: 93 kg

DRUGS (63)
  1. GABAPENTIN. [Concomitant]
     Active Substance: GABAPENTIN
     Indication: NEUROPATHY PERIPHERAL
     Dates: start: 2017
  2. ZONISAMIDE. [Concomitant]
     Active Substance: ZONISAMIDE
  3. FLOMAX [Concomitant]
     Active Substance: TAMSULOSIN HYDROCHLORIDE
  4. NORVASC [Concomitant]
     Active Substance: AMLODIPINE BESYLATE
  5. TOPAMAX [Concomitant]
     Active Substance: TOPIRAMATE
  6. CIPROFLOXACIN. [Concomitant]
     Active Substance: CIPROFLOXACIN
  7. ANTARA [Concomitant]
     Active Substance: FENOFIBRATE
  8. CYMBALTA [Concomitant]
     Active Substance: DULOXETINE HYDROCHLORIDE
  9. NEXIUM [Suspect]
     Active Substance: ESOMEPRAZOLE MAGNESIUM
     Indication: GASTROOESOPHAGEAL REFLUX DISEASE
     Route: 048
     Dates: start: 2006, end: 2015
  10. NEXIUM [Suspect]
     Active Substance: ESOMEPRAZOLE MAGNESIUM
     Indication: GASTROOESOPHAGEAL REFLUX DISEASE
     Route: 048
     Dates: start: 201407, end: 201504
  11. ALKA-SELTZER [Concomitant]
     Active Substance: ANHYDROUS CITRIC ACID\ASPIRIN\SODIUM BICARBONATE
     Dosage: 1 DOSAGE DAILY
     Dates: start: 1970, end: 2010
  12. ZETIA [Concomitant]
     Active Substance: EZETIMIBE
  13. LEVAQUIN [Concomitant]
     Active Substance: LEVOFLOXACIN
  14. AVELOX [Concomitant]
     Active Substance: MOXIFLOXACIN HYDROCHLORIDE
  15. ROPINIROLE. [Concomitant]
     Active Substance: ROPINIROLE
  16. ALBUTEROL. [Concomitant]
     Active Substance: ALBUTEROL
  17. VESICARE [Concomitant]
     Active Substance: SOLIFENACIN SUCCINATE
  18. METFORMIN [Concomitant]
     Active Substance: METFORMIN HYDROCHLORIDE
  19. ONDANSETRON [Concomitant]
     Active Substance: ONDANSETRON
  20. FENTANYL. [Concomitant]
     Active Substance: FENTANYL
     Indication: PAIN
     Dates: start: 2015, end: 2016
  21. DONEPEZIL. [Concomitant]
     Active Substance: DONEPEZIL
     Indication: DEMENTIA
     Dates: start: 2015
  22. PENTAZOCINE [Concomitant]
     Active Substance: PENTAZOCINE
  23. VYTORIN [Concomitant]
     Active Substance: EZETIMIBE\SIMVASTATIN
  24. MELOXICAM. [Concomitant]
     Active Substance: MELOXICAM
  25. LEVEMIR [Concomitant]
     Active Substance: INSULIN DETEMIR
  26. NEXIUM [Suspect]
     Active Substance: ESOMEPRAZOLE MAGNESIUM
     Indication: GASTROOESOPHAGEAL REFLUX DISEASE
     Dosage: 40.0MG UNKNOWN
     Route: 048
     Dates: start: 20060801
  27. MIRTAZAPINE. [Concomitant]
     Active Substance: MIRTAZAPINE
     Indication: BACK PAIN
     Dates: start: 2017
  28. TRAZODONE [Concomitant]
     Active Substance: TRAZODONE HYDROCHLORIDE
     Indication: SLEEP DISORDER
  29. HYDROCODONE [Concomitant]
     Active Substance: HYDROCODONE
  30. KETOCONAZOLE. [Concomitant]
     Active Substance: KETOCONAZOLE
  31. ZONISAMIDE. [Concomitant]
     Active Substance: ZONISAMIDE
  32. XIFAXAN [Concomitant]
     Active Substance: RIFAXIMIN
  33. EXELON [Concomitant]
     Active Substance: RIVASTIGMINE TARTRATE
  34. ZALEPLON. [Concomitant]
     Active Substance: ZALEPLON
  35. PRAVASTATIN SODIUM. [Concomitant]
     Active Substance: PRAVASTATIN SODIUM
  36. CARVEDILOL. [Concomitant]
     Active Substance: CARVEDILOL
  37. VITAMIN B NOS [Concomitant]
     Active Substance: VITAMIN B
  38. VITAMIN E [Concomitant]
     Active Substance: .ALPHA.-TOCOPHEROL
  39. DIOVAN [Concomitant]
     Active Substance: VALSARTAN
  40. ACTOPLUS MET [Concomitant]
     Active Substance: METFORMIN HYDROCHLORIDE\PIOGLITAZONE HYDROCHLORIDE
  41. PAROXETINE. [Concomitant]
     Active Substance: PAROXETINE
  42. FLUCONAZOLE. [Concomitant]
     Active Substance: FLUCONAZOLE
  43. AMBIEN [Concomitant]
     Active Substance: ZOLPIDEM TARTRATE
  44. CARISOPRODOL. [Concomitant]
     Active Substance: CARISOPRODOL
  45. ZYRTEC [Concomitant]
     Active Substance: CETIRIZINE HYDROCHLORIDE
  46. NYSTATIN. [Concomitant]
     Active Substance: NYSTATIN
  47. METOCLOPRAMIDE. [Concomitant]
     Active Substance: METOCLOPRAMIDE
  48. EXFORGE [Concomitant]
     Active Substance: AMLODIPINE BESYLATE\VALSARTAN
  49. FLECTOR [Concomitant]
     Active Substance: DICLOFENAC EPOLAMINE
  50. CEFUROXIME. [Concomitant]
     Active Substance: CEFUROXIME
  51. LEVETIRACETAM. [Concomitant]
     Active Substance: LEVETIRACETAM
  52. NEXIUM [Suspect]
     Active Substance: ESOMEPRAZOLE MAGNESIUM
     Indication: GASTROOESOPHAGEAL REFLUX DISEASE
     Route: 048
     Dates: start: 200609, end: 201307
  53. OXYCODONE [Concomitant]
     Active Substance: OXYCODONE
     Indication: PAIN
     Dates: start: 2015
  54. GLIMEPIRIDE. [Concomitant]
     Active Substance: GLIMEPIRIDE
  55. LORAZEPAM. [Concomitant]
     Active Substance: LORAZEPAM
  56. ACYCLOVIR. [Concomitant]
     Active Substance: ACYCLOVIR
  57. SEROQUEL [Concomitant]
     Active Substance: QUETIAPINE FUMARATE
     Indication: SLEEP DISORDER
     Dates: start: 2015
  58. AMITRIPTYLINE [Concomitant]
     Active Substance: AMITRIPTYLINE
  59. LANTUS [Concomitant]
     Active Substance: INSULIN GLARGINE
  60. AMOXICILLIN. [Concomitant]
     Active Substance: AMOXICILLIN
  61. CELEBREX [Concomitant]
     Active Substance: CELECOXIB
  62. DIPHENOXYLATE [Concomitant]
     Active Substance: DIPHENOXYLATE
  63. VITAMIN C [Concomitant]
     Active Substance: ASCORBIC ACID

REACTIONS (4)
  - Chronic kidney disease [Not Recovered/Not Resolved]
  - Nephrogenic anaemia [Unknown]
  - Acute kidney injury [Unknown]
  - Renal failure [Unknown]

NARRATIVE: CASE EVENT DATE: 2015
